FAERS Safety Report 24015799 (Version 1)
Quarter: 2024Q2

REPORT INFORMATION
  Report Type: Report from Study
  Country: BY (occurrence: BY)
  Receive Date: 20240626
  Receipt Date: 20240626
  Transmission Date: 20240716
  Serious: Yes (Death, Life-Threatening)
  Sender: FDA-Public Use
  Company Number: BY-MYLANLABS-2024M1058242

PATIENT
  Age: 74 Year
  Sex: Male
  Weight: 44 kg

DRUGS (6)
  1. PRETOMANID [Suspect]
     Active Substance: PRETOMANID
     Indication: Product used for unknown indication
     Dosage: 200 MILLIGRAM, QD
     Route: 048
     Dates: start: 20230627, end: 20231211
  2. BEDAQUILINE [Suspect]
     Active Substance: BEDAQUILINE
     Indication: Product used for unknown indication
     Dosage: 400 MILLIGRAM, QD
     Route: 048
     Dates: start: 20230627
  3. BEDAQUILINE [Suspect]
     Active Substance: BEDAQUILINE
     Dosage: 200 MILLIGRAM, 3XW
     Route: 048
     Dates: end: 20231211
  4. LINEZOLID [Suspect]
     Active Substance: LINEZOLID
     Indication: Product used for unknown indication
     Dosage: 600 MILLIGRAM, QD
     Route: 048
     Dates: start: 20230627
  5. LINEZOLID [Suspect]
     Active Substance: LINEZOLID
     Dosage: 300 MILLIGRAM, QD
     Route: 048
     Dates: end: 20231206
  6. MOXIFLOXACIN [Suspect]
     Active Substance: MOXIFLOXACIN
     Indication: Product used for unknown indication
     Dosage: 400 MILLIGRAM, QD
     Route: 048
     Dates: start: 20230627, end: 20231211

REACTIONS (2)
  - Cardiac failure [Fatal]
  - Anaemia [Not Recovered/Not Resolved]

NARRATIVE: CASE EVENT DATE: 20231206
